FAERS Safety Report 4316117-6 (Version None)
Quarter: 2004Q1

REPORT INFORMATION
  Report Type: 
  Country: None (occurrence: None)
  Receive Date: 20040312
  Receipt Date: 20040308
  Transmission Date: 20041129
  Serious: Yes (Life-Threatening)
  Sender: FDA-Public Use
  Company Number: 200412947GDDC

PATIENT
  Age: 55 Year
  Sex: Male
  Weight: 110 kg

DRUGS (5)
  1. ARAVA [Suspect]
     Indication: RHEUMATOID ARTHRITIS
     Route: 048
     Dates: start: 20030901, end: 20040201
  2. PREDNISOLONE [Concomitant]
     Indication: RHEUMATOID ARTHRITIS
  3. AZATHIOPRINE [Concomitant]
     Indication: RHEUMATOID ARTHRITIS
     Route: 048
  4. ALENDRONATE SODIUM [Concomitant]
     Indication: RHEUMATOID ARTHRITIS
     Route: 048
  5. CALCICHEW [Concomitant]
     Indication: RHEUMATOID ARTHRITIS
     Dosage: DOSE: UNK
     Route: 048

REACTIONS (2)
  - LABILE HYPERTENSION [None]
  - MYOCARDIAL INFARCTION [None]
